FAERS Safety Report 5714401-2 (Version None)
Quarter: 2008Q2

REPORT INFORMATION
  Report Type: 
  Country: None (occurrence: None)
  Receive Date: 20080423
  Receipt Date: 20080417
  Transmission Date: 20081010
  Serious: Yes (Other)
  Sender: FDA-Public Use
  Company Number: US-TEVA-166067USA

PATIENT

DRUGS (2)
  1. METFORMIN HYDROCHLORIDE [Suspect]
  2. THIAZOLIDINEDIONE [Suspect]

REACTIONS (1)
  - CIRRHOSIS ALCOHOLIC [None]
